FAERS Safety Report 8551917 (Version 19)
Quarter: 2014Q1

REPORT INFORMATION
  Report Type: Report from Study
  Country: CA (occurrence: CA)
  Receive Date: 20120508
  Receipt Date: 20140319
  Transmission Date: 20141002
  Serious: Yes (Hospitalization, Other)
  Sender: FDA-Public Use
  Company Number: CA-ROCHE-1063413

PATIENT
  Age: 60 Year
  Sex: Male
  Weight: 93 kg

DRUGS (23)
  1. ACTEMRA [Suspect]
     Indication: RHEUMATOID ARTHRITIS
     Route: 042
     Dates: start: 20111104
  2. ACTEMRA [Suspect]
     Indication: STILL^S DISEASE ADULT ONSET
     Route: 042
     Dates: start: 20130509
  3. ACTEMRA [Suspect]
     Route: 042
  4. RITUXAN [Suspect]
     Indication: RHEUMATOID ARTHRITIS
     Route: 042
     Dates: start: 20110516, end: 20110516
  5. PLAQUENIL [Concomitant]
  6. METHOTREXATE [Concomitant]
  7. PREDNISONE [Concomitant]
  8. FOLIC ACID [Concomitant]
  9. RISENDROS [Concomitant]
  10. TESTOSTERONE [Concomitant]
  11. PAXIL [Concomitant]
  12. WELLBUTRIN [Concomitant]
  13. MIRAPEX [Concomitant]
  14. ASA [Concomitant]
  15. LIPITOR [Concomitant]
  16. NITRO (GLYCERYL TRINITRATE) [Concomitant]
  17. CALCIUM D 500 [Concomitant]
  18. AMIODARONE [Concomitant]
  19. PANTOLOC [Concomitant]
  20. COVERSYL [Concomitant]
  21. TYLENOL [Concomitant]
     Indication: PREMEDICATION
     Route: 048
     Dates: start: 20110516, end: 20110516
  22. BENADRYL (CANADA) [Concomitant]
     Indication: PREMEDICATION
     Route: 048
     Dates: start: 20110516, end: 20110516
  23. SOLU-MEDROL [Concomitant]
     Indication: PREMEDICATION
     Route: 042
     Dates: start: 20110516, end: 20110516

REACTIONS (17)
  - Pleural effusion [Unknown]
  - Asthenia [Unknown]
  - Hypophagia [Unknown]
  - Bronchitis [Recovered/Resolved]
  - Phlebitis [Unknown]
  - Red blood cell abnormality [Unknown]
  - White blood cell disorder [Unknown]
  - Dyspnoea [Unknown]
  - Dyspnoea [Unknown]
  - Hypothyroidism [Unknown]
  - Pain in extremity [Not Recovered/Not Resolved]
  - Local swelling [Not Recovered/Not Resolved]
  - Weight increased [Not Recovered/Not Resolved]
  - Dyspnoea exertional [Not Recovered/Not Resolved]
  - Juvenile idiopathic arthritis [Unknown]
  - Off label use [Unknown]
  - Insomnia [Unknown]
